FAERS Safety Report 16705545 (Version 1)
Quarter: 2019Q3

REPORT INFORMATION
  Report Type: Spontaneous
  Country: CN (occurrence: CN)
  Receive Date: 20190815
  Receipt Date: 20190815
  Transmission Date: 20191004
  Serious: Yes (Other)
  Sender: FDA-Public Use
  Company Number: CN-ROCHE-2367579

PATIENT
  Age: 68 Year
  Sex: Male

DRUGS (13)
  1. PREDNISONE ACETATE [Concomitant]
     Active Substance: PREDNISONE ACETATE
     Indication: DIFFUSE LARGE B-CELL LYMPHOMA
     Route: 065
     Dates: start: 20180210, end: 2018
  2. DEXAMETHASONE. [Concomitant]
     Active Substance: DEXAMETHASONE
     Indication: DIFFUSE LARGE B-CELL LYMPHOMA
     Dosage: DAY1-7
     Route: 065
     Dates: start: 20190404
  3. DEXAMETHASONE. [Concomitant]
     Active Substance: DEXAMETHASONE
     Route: 065
     Dates: start: 20190505, end: 20190527
  4. CYCLOPHOSPHAMIDE. [Concomitant]
     Active Substance: CYCLOPHOSPHAMIDE
     Indication: DIFFUSE LARGE B-CELL LYMPHOMA
     Route: 065
     Dates: start: 20180210, end: 2018
  5. EPIRUBICIN [Concomitant]
     Active Substance: EPIRUBICIN
     Indication: DIFFUSE LARGE B-CELL LYMPHOMA
     Route: 065
     Dates: start: 20180210, end: 2018
  6. PREDNISONE ACETATE [Concomitant]
     Active Substance: PREDNISONE ACETATE
     Route: 065
     Dates: start: 20190404
  7. IBRUTINIB [Concomitant]
     Active Substance: IBRUTINIB
     Indication: DIFFUSE LARGE B-CELL LYMPHOMA
     Route: 065
     Dates: start: 20190510
  8. VINORELBINE [Concomitant]
     Active Substance: VINORELBINE TARTRATE
     Indication: DIFFUSE LARGE B-CELL LYMPHOMA
     Dosage: DAY1
     Route: 065
     Dates: start: 20190404
  9. MABTHERA [Suspect]
     Active Substance: RITUXIMAB
     Indication: DIFFUSE LARGE B-CELL LYMPHOMA
     Route: 065
     Dates: start: 20180210, end: 2018
  10. VINCRISTINE [Concomitant]
     Active Substance: VINCRISTINE
     Indication: DIFFUSE LARGE B-CELL LYMPHOMA
     Route: 065
     Dates: start: 20180210, end: 2018
  11. VINCRISTINE [Concomitant]
     Active Substance: VINCRISTINE
     Route: 065
     Dates: start: 20190404
  12. METHOTREXATE. [Concomitant]
     Active Substance: METHOTREXATE
     Route: 065
     Dates: start: 20190505, end: 20190527
  13. METHOTREXATE. [Concomitant]
     Active Substance: METHOTREXATE
     Indication: DIFFUSE LARGE B-CELL LYMPHOMA
     Route: 065
     Dates: start: 20190404

REACTIONS (14)
  - Unresponsive to stimuli [Recovering/Resolving]
  - Pyrexia [Recovered/Resolved]
  - Urinary incontinence [Recovering/Resolving]
  - Cognitive disorder [Recovering/Resolving]
  - Coma [Recovering/Resolving]
  - Nausea [Unknown]
  - Vomiting [Recovering/Resolving]
  - Tinnitus [Unknown]
  - Aphasia [Recovering/Resolving]
  - Anal incontinence [Recovering/Resolving]
  - Dizziness [Recovering/Resolving]
  - Hypersensitivity [Unknown]
  - Diplopia [Unknown]
  - Headache [Unknown]

NARRATIVE: CASE EVENT DATE: 20180527
